FAERS Safety Report 22155983 (Version 4)
Quarter: 2023Q2

REPORT INFORMATION
  Report Type: Spontaneous
  Country: AR (occurrence: AR)
  Receive Date: 20230330
  Receipt Date: 20230417
  Transmission Date: 20230722
  Serious: Yes (Other)
  Sender: FDA-Public Use
  Company Number: AR-MYLANLABS-2023M1029001

PATIENT
  Age: 17 Year
  Sex: Male

DRUGS (2)
  1. CLOZAPINE [Suspect]
     Active Substance: CLOZAPINE
     Indication: Suicidal ideation
     Dosage: 175 MILLIGRAM, QD
     Route: 065
     Dates: start: 20230213, end: 20230408
  2. DIVALPROEX SODIUM [Concomitant]
     Active Substance: DIVALPROEX SODIUM
     Indication: Suicidal ideation
     Dosage: 750 MILLIGRAM, QD
     Route: 065
     Dates: start: 20230213

REACTIONS (8)
  - Neutropenia [Recovered/Resolved]
  - Red blood cell count decreased [Recovering/Resolving]
  - Eosinophil count increased [Recovered/Resolved]
  - Haematocrit decreased [Recovered/Resolved]
  - Haemoglobin decreased [Recovered/Resolved]
  - Lymphocyte count increased [Recovered/Resolved]
  - Monocyte count increased [Unknown]
  - Off label use [Unknown]

NARRATIVE: CASE EVENT DATE: 20230315
